FAERS Safety Report 19596927 (Version 1)
Quarter: 2021Q3

REPORT INFORMATION
  Report Type: Spontaneous
  Country: IT (occurrence: IT)
  Receive Date: 20210723
  Receipt Date: 20210723
  Transmission Date: 20211014
  Serious: Yes (Other)
  Sender: FDA-Public Use
  Company Number: IT-BAUSCH-BL-2021-025399

PATIENT
  Age: 38 Year
  Sex: Male
  Weight: 89 kg

DRUGS (6)
  1. HYDROCORTISONE. [Suspect]
     Active Substance: HYDROCORTISONE
     Indication: PRODUCT USED FOR UNKNOWN INDICATION
     Route: 065
  2. CABERGOLINE. [Concomitant]
     Active Substance: CABERGOLINE
  3. TESTOSTERONE. [Concomitant]
     Active Substance: TESTOSTERONE
     Indication: HORMONE REPLACEMENT THERAPY
     Route: 062
  4. OCTREOTIDE. [Concomitant]
     Active Substance: OCTREOTIDE
     Indication: PITUITARY TUMOUR BENIGN
  5. ANASTROZOLE. [Suspect]
     Active Substance: ANASTROZOLE
     Indication: PITUITARY TUMOUR BENIGN
     Route: 065
  6. CABERGOLINE. [Concomitant]
     Active Substance: CABERGOLINE
     Indication: PITUITARY TUMOUR BENIGN

REACTIONS (1)
  - Osteopenia [Unknown]
